FAERS Safety Report 22541961 (Version 1)
Quarter: 2023Q2

REPORT INFORMATION
  Report Type: Spontaneous
  Country: US (occurrence: US)
  Receive Date: 20230609
  Receipt Date: 20230609
  Transmission Date: 20230721
  Serious: No
  Sender: FDA-Public Use
  Company Number: US-BRISTOL-MYERS SQUIBB COMPANY-2023-078918

PATIENT
  Age: 72 Year
  Sex: Female

DRUGS (2)
  1. KENALOG [Suspect]
     Active Substance: TRIAMCINOLONE ACETONIDE
     Indication: Pain
     Dosage: DOSE : 1 DOSE;     FREQ : ONE TIME
     Route: 030
     Dates: start: 20220925
  2. KENALOG [Suspect]
     Active Substance: TRIAMCINOLONE ACETONIDE
     Indication: Compression fracture

REACTIONS (5)
  - Muscle injury [Unknown]
  - Joint dislocation [Unknown]
  - Ligament sprain [Unknown]
  - Rotator cuff syndrome [Unknown]
  - Muscle atrophy [Unknown]
